FAERS Safety Report 18191499 (Version 1)
Quarter: 2020Q3

REPORT INFORMATION
  Report Type: Spontaneous
  Country: US (occurrence: US)
  Receive Date: 20200824
  Receipt Date: 20200824
  Transmission Date: 20201103
  Serious: No
  Sender: FDA-Public Use
  Company Number: None

PATIENT
  Age: 86 Year
  Sex: Female

DRUGS (1)
  1. FULVESTRANT. [Suspect]
     Active Substance: FULVESTRANT
     Dosage: ?          OTHER FREQUENCY:OTHER;?
     Route: 030
     Dates: start: 202008

REACTIONS (2)
  - Bone pain [None]
  - Injection site pain [None]

NARRATIVE: CASE EVENT DATE: 20200821
